FAERS Safety Report 20188700 (Version 1)
Quarter: 2021Q4

REPORT INFORMATION
  Report Type: Spontaneous
  Country: US (occurrence: None)
  Receive Date: 20211215
  Receipt Date: 20211215
  Transmission Date: 20220303
  Serious: Yes (Hospitalization)
  Sender: FDA-Public Use
  Company Number: None

PATIENT
  Sex: Female

DRUGS (14)
  1. DALFAMPRIDINE [Suspect]
     Active Substance: DALFAMPRIDINE
     Indication: Multiple sclerosis
     Dosage: FREQUENCY : TWICE A DAY;?
     Route: 048
     Dates: start: 20200909
  2. ACTONEL [Concomitant]
     Active Substance: RISEDRONATE SODIUM
  3. ALBUTEROL [Concomitant]
     Active Substance: ALBUTEROL
  4. ALLEGRA [Concomitant]
     Active Substance: FEXOFENADINE HYDROCHLORIDE
  5. DILT-CD [Concomitant]
     Active Substance: DILTIAZEM HYDROCHLORIDE
  6. DILTIAZEM [Concomitant]
     Active Substance: DILTIAZEM
  7. FLONASE SPR [Concomitant]
  8. LEVETIRACETAM [Concomitant]
     Active Substance: LEVETIRACETAM
  9. LOVASTATIN [Concomitant]
     Active Substance: LOVASTATIN
  10. LOVAZA [Concomitant]
     Active Substance: OMEGA-3-ACID ETHYL ESTERS
  11. OMEGA-3 ACIDS [Concomitant]
     Active Substance: OMEGA-3 FATTY ACIDS
  12. PREMARIN [Concomitant]
     Active Substance: ESTROGENS, CONJUGATED
  13. PROVIGIL [Concomitant]
     Active Substance: MODAFINIL
  14. SPIRIVA HANDIHLR [Concomitant]

REACTIONS (2)
  - Fall [None]
  - Hip fracture [None]
